FAERS Safety Report 4594132-5 (Version None)
Quarter: 2005Q1

REPORT INFORMATION
  Report Type: 
  Country: None (occurrence: None)
  Receive Date: 20050301
  Receipt Date: 20050217
  Transmission Date: 20050727
  Serious: Yes (Hospitalization)
  Sender: FDA-Public Use
  Company Number: FR-JNJFOC-20050106785

PATIENT
  Sex: Female
  Weight: 52 kg

DRUGS (9)
  1. REMINYL [Suspect]
     Route: 049
  2. REMINYL [Suspect]
     Route: 049
  3. REMINYL [Suspect]
     Route: 049
  4. HYZAAR [Concomitant]
     Route: 065
  5. HYZAAR [Concomitant]
     Route: 065
  6. TAHOR [Concomitant]
     Route: 065
  7. KARDEGIC [Concomitant]
     Route: 065
  8. AMLODIPINE BESYLATE [Concomitant]
     Route: 065
  9. DAFLON [Concomitant]
     Indication: VENOUS INSUFFICIENCY
     Route: 065

REACTIONS (8)
  - EYE ROLLING [None]
  - HYPERHIDROSIS [None]
  - LOSS OF CONSCIOUSNESS [None]
  - MALAISE [None]
  - NAUSEA [None]
  - PALLOR [None]
  - SYNCOPE VASOVAGAL [None]
  - URINARY INCONTINENCE [None]
